FAERS Safety Report 18864135 (Version 1)
Quarter: 2021Q1

REPORT INFORMATION
  Report Type: Spontaneous
  Country: US (occurrence: US)
  Receive Date: 20210209
  Receipt Date: 20210209
  Transmission Date: 20210420
  Serious: No
  Sender: FDA-Public Use
  Company Number: US-SA-2021SA038040

PATIENT
  Sex: Male
  Weight: 127 kg

DRUGS (1)
  1. FABRAZYME [Suspect]
     Active Substance: AGALSIDASE BETA
     Dosage: 135 MG, QOW
     Route: 042
     Dates: start: 20051109

REACTIONS (2)
  - Product dose omission issue [Unknown]
  - Myalgia [Unknown]
